FAERS Safety Report 9052922 (Version 1)
Quarter: 2013Q1

REPORT INFORMATION
  Report Type: Spontaneous
  Country: US (occurrence: US)
  Receive Date: 20130207
  Receipt Date: 20130207
  Transmission Date: 20140127
  Serious: Yes (Hospitalization, Other)
  Sender: FDA-Public Use
  Company Number: US-ELI_LILLY_AND_COMPANY-US201301008958

PATIENT
  Sex: Female
  Weight: 69.39 kg

DRUGS (7)
  1. BYETTA [Suspect]
     Indication: TYPE 2 DIABETES MELLITUS
     Dosage: UNK
     Route: 058
     Dates: start: 2008, end: 201112
  2. BYETTA [Suspect]
     Dosage: UNK
     Route: 058
     Dates: start: 201203
  3. METFORMIN [Concomitant]
     Indication: TYPE 2 DIABETES MELLITUS
     Dosage: 500 MG, BID
     Route: 048
  4. GLIMEPIRIDE [Concomitant]
     Indication: TYPE 2 DIABETES MELLITUS
     Dosage: 2 MG, BID
     Route: 048
     Dates: start: 201203
  5. PROTONIX [Concomitant]
     Indication: IRRITABLE BOWEL SYNDROME
     Dosage: 40 MG, QD
     Route: 048
  6. SYNTHROID [Concomitant]
     Indication: HYPOTHYROIDISM
     Dosage: 0.88 UG, QD
     Route: 048
  7. EFFEXOR                                 /USA/ [Concomitant]
     Indication: ANXIETY DISORDER
     Dosage: 75 MG, BID
     Route: 048

REACTIONS (6)
  - Diverticulitis [Recovering/Resolving]
  - Polyp [Not Recovered/Not Resolved]
  - Glycosylated haemoglobin increased [Not Recovered/Not Resolved]
  - Nausea [Recovered/Resolved]
  - Abdominal distension [Recovering/Resolving]
  - Blood glucose decreased [Recovered/Resolved]
